FAERS Safety Report 24184751 (Version 1)
Quarter: 2024Q3

REPORT INFORMATION
  Report Type: Spontaneous
  Country: US (occurrence: None)
  Receive Date: 20240807
  Receipt Date: 20240807
  Transmission Date: 20241017
  Serious: Yes (Disabling, Other)
  Sender: Public
  Company Number: None

PATIENT
  Age: 27 Year
  Sex: Male
  Weight: 99 kg

DRUGS (3)
  1. FINASTERIDE [Suspect]
     Active Substance: FINASTERIDE
     Indication: Androgenetic alopecia
     Dates: start: 20231101, end: 20240304
  2. Men^s one a day multivitamin [Concomitant]
  3. FISH OIL\OMEGA-3 FATTY ACIDS [Concomitant]
     Active Substance: FISH OIL\OMEGA-3 FATTY ACIDS

REACTIONS (8)
  - Loss of libido [None]
  - Affective disorder [None]
  - Depression [None]
  - Genital atrophy [None]
  - Peyronie^s disease [None]
  - Weight decreased [None]
  - Insomnia [None]
  - Blood testosterone increased [None]

NARRATIVE: CASE EVENT DATE: 20240304
